FAERS Safety Report 9889720 (Version 1)
Quarter: 2014Q1

REPORT INFORMATION
  Report Type: Spontaneous
  Country: US (occurrence: US)
  Receive Date: 20140211
  Receipt Date: 20140211
  Transmission Date: 20141002
  Serious: Yes (Other)
  Sender: FDA-Public Use
  Company Number: US-PFIZER INC-2014036829

PATIENT
  Age: 49 Year
  Sex: Female

DRUGS (12)
  1. XANAX [Suspect]
     Dosage: UNK
  2. PROTONIX [Suspect]
     Dosage: 40 MG, DAILY
  3. LYRICA [Suspect]
     Dosage: 150 TWICE A DAY (NO UNITS PROVIDED)
  4. LISINOPRIL [Concomitant]
     Dosage: 20 MG, UNK
  5. ATENOLOL [Concomitant]
     Dosage: 25 MG, UNK
  6. LASIX [Concomitant]
     Dosage: UNK
  7. ALLOPURINOL [Concomitant]
     Dosage: UNK
  8. PREDNISONE [Concomitant]
     Dosage: UNK
  9. METHOTREXATE [Concomitant]
     Dosage: UNK
  10. FENOFIBRATE [Concomitant]
     Dosage: UNK
  11. ZOFRAN [Concomitant]
     Dosage: UNK
  12. LORTAB [Concomitant]
     Dosage: UNK

REACTIONS (5)
  - Psoriatic arthropathy [Unknown]
  - Abasia [Unknown]
  - Diabetic neuropathy [Unknown]
  - Gait disturbance [Unknown]
  - Pain [Unknown]
